FAERS Safety Report 24528355 (Version 1)
Quarter: 2024Q4

REPORT INFORMATION
  Report Type: Report from Study
  Country: US (occurrence: US)
  Receive Date: 20241021
  Receipt Date: 20241021
  Transmission Date: 20250115
  Serious: Yes (Hospitalization, Other)
  Sender: EXELIXIS
  Company Number: US-EXELIXIS-EXL-2024-000829

PATIENT
  Sex: Male

DRUGS (4)
  1. CABOMETYX [Suspect]
     Active Substance: CABOZANTINIB S-MALATE
     Indication: Renal cell carcinoma
     Dosage: 40 MG, QD
     Dates: start: 20240820
  2. CABOMETYX [Suspect]
     Active Substance: CABOZANTINIB S-MALATE
     Dosage: 40 MG, QD
  3. LISINOPRIL [Concomitant]
     Active Substance: LISINOPRIL
  4. AMLODIPINE [Concomitant]
     Active Substance: AMLODIPINE BESYLATE

REACTIONS (22)
  - Oropharyngeal blistering [Unknown]
  - Adrenal disorder [Unknown]
  - Rhinalgia [Unknown]
  - Hair colour changes [Unknown]
  - Oropharyngeal pain [Unknown]
  - Nasal mucosal blistering [Unknown]
  - Headache [Unknown]
  - Diarrhoea [Unknown]
  - Asthenia [Unknown]
  - Dysgeusia [Unknown]
  - Blood pressure increased [Unknown]
  - Nausea [Unknown]
  - Decreased appetite [Unknown]
  - Fatigue [Unknown]
  - Rash macular [Unknown]
  - Throat lesion [Unknown]
  - Limb discomfort [Unknown]
  - Gastrooesophageal reflux disease [Unknown]
  - Skin discolouration [Unknown]
  - Oral disorder [Unknown]
  - Tongue disorder [Unknown]
  - Nasal disorder [Unknown]
